FAERS Safety Report 5944525-6 (Version None)
Quarter: 2008Q4

REPORT INFORMATION
  Report Type: 
  Country: None (occurrence: None)
  Receive Date: 20081104
  Receipt Date: 20081006
  Transmission Date: 20090506
  Serious: Yes (Hospitalization)
  Sender: FDA-Public Use
  Company Number: TPG2008A01209

PATIENT
  Age: 80 Year
  Sex: Female

DRUGS (9)
  1. ACTOS [Suspect]
     Indication: DRUG USE FOR UNKNOWN INDICATION
     Dosage: 30 MG (30 MG, 1 IN 1 D) PER ORAL
     Route: 048
  2. JANUVIA (ORAL ANTIDIABETICS) [Concomitant]
  3. VIVACE (MANIDIPINE HYDROCHLORIDE, DELAPRIL HYDROCHLORIDE) [Concomitant]
  4. DURASPIRON (SPIRONOLACTONE) [Concomitant]
  5. BISOPROLOL (BISOPROLOL) [Concomitant]
  6. MOXOGAMMA (MOXONIDINE) [Concomitant]
  7. NEXIUM [Concomitant]
  8. ALLOPURINOL [Concomitant]
  9. L-THYROXINE (LEVOTHYROXINE) [Concomitant]

REACTIONS (2)
  - HYPERTRIGLYCERIDAEMIA [None]
  - PANCREATITIS [None]
